FAERS Safety Report 11022736 (Version 1)
Quarter: 2015Q2

REPORT INFORMATION
  Report Type: Spontaneous
  Country: US (occurrence: US)
  Receive Date: 20150413
  Receipt Date: 20150413
  Transmission Date: 20150821
  Serious: Yes (Hospitalization, Other)
  Sender: FDA-Public Use
  Company Number: US-ASTELLAS-2015US010919

PATIENT
  Age: 34 Year
  Sex: Male

DRUGS (6)
  1. PROGRAF [Suspect]
     Active Substance: TACROLIMUS\TACROLIMUS ANHYDROUS
     Indication: LIVER TRANSPLANT
     Route: 048
     Dates: start: 1995
  2. NEPHRON [Concomitant]
     Indication: ANTIFUNGAL TREATMENT
     Dosage: UNK, UNKNOWN FREQ.
     Route: 065
     Dates: start: 201502
  3. PREDNISONE. [Concomitant]
     Active Substance: PREDNISONE
     Indication: ANTIINFLAMMATORY THERAPY
     Dosage: UNK, UNKNOWN FREQ.
     Route: 048
     Dates: start: 201502
  4. VALCYTE [Concomitant]
     Active Substance: VALGANCICLOVIR HYDROCHLORIDE
     Indication: LIVER TRANSPLANT
     Dosage: UNK, UNKNOWN FREQ.
     Route: 065
     Dates: start: 20150303
  5. IMURAN [Concomitant]
     Active Substance: AZATHIOPRINE
     Indication: LIVER TRANSPLANT
     Dosage: UNK, UNKNOWN FREQ.
     Route: 048
     Dates: start: 1995
  6. NYSTATIN. [Concomitant]
     Active Substance: NYSTATIN
     Indication: ANTIFUNGAL TREATMENT
     Dosage: UNK, UNKNOWN FREQ.
     Route: 065
     Dates: start: 201502

REACTIONS (4)
  - Ocular icterus [Recovering/Resolving]
  - Liver transplant rejection [Recovering/Resolving]
  - Inappropriate schedule of drug administration [Unknown]
  - Malaise [Recovering/Resolving]

NARRATIVE: CASE EVENT DATE: 20150220
